FAERS Safety Report 14347886 (Version 1)
Quarter: 2018Q1

REPORT INFORMATION
  Report Type: Spontaneous
  Country: CN (occurrence: CN)
  Receive Date: 20180103
  Receipt Date: 20180103
  Transmission Date: 20180509
  Serious: Yes (Other)
  Sender: FDA-Public Use
  Company Number: CN-JNJFOC-20171233696

PATIENT

DRUGS (3)
  1. CARBAMAZEPINE. [Suspect]
     Active Substance: CARBAMAZEPINE
     Indication: EPILEPSY
     Dosage: 5 MG (KG.D) GRADUALLY INCREASED TO 15-20 MG/(KG?D) BID
     Route: 048
  2. TOPIRAMATE. [Suspect]
     Active Substance: TOPIRAMATE
     Indication: EPILEPSY
     Dosage: 0.5-1 MG (KG.D) GRADUALLY INCREASED TO 4-8 MG/(KG?D) BID
     Route: 048
  3. LEVETIRACETAM. [Suspect]
     Active Substance: LEVETIRACETAM
     Indication: EPILEPSY
     Dosage: 10-20 MG (KG.D) BID INCREASED BY 10MG/(KG?D) EVERY 2 WEEKS.
     Route: 048

REACTIONS (5)
  - Diarrhoea [Unknown]
  - Dizziness [Unknown]
  - Somnolence [Unknown]
  - Renal impairment [Unknown]
  - Hepatic function abnormal [Unknown]
